FAERS Safety Report 5656560-6 (Version None)
Quarter: 2008Q1

REPORT INFORMATION
  Report Type: 
  Country: None (occurrence: None)
  Receive Date: 20080310
  Receipt Date: 20080228
  Transmission Date: 20080703
  Serious: Yes (Other)
  Sender: FDA-Public Use
  Company Number: US-WYE-H02606808

PATIENT
  Sex: Female
  Weight: 70.37 kg

DRUGS (1)
  1. ADVIL [Suspect]
     Indication: INFLAMMATION
     Dosage: 3 LIQUI-GELS AS NEEDED
     Route: 048

REACTIONS (1)
  - ANGIOEDEMA [None]
